FAERS Safety Report 14151967 (Version 1)
Quarter: 2017Q4

REPORT INFORMATION
  Report Type: Spontaneous
  Country: US (occurrence: None)
  Receive Date: 20171101
  Receipt Date: 20171101
  Transmission Date: 20180321
  Serious: Yes (Hospitalization)
  Sender: FDA-Public Use
  Company Number: None

PATIENT
  Age: 56 Year
  Sex: Female
  Weight: 50 kg

DRUGS (2)
  1. ACETAMINOPHEN/BUTALBITAL [Suspect]
     Active Substance: ACETAMINOPHEN\BUTALBITAL
     Indication: HEADACHE
     Route: 048
     Dates: start: 20161115
  2. BACLOFEN. [Suspect]
     Active Substance: BACLOFEN
     Indication: HEADACHE
     Route: 048
     Dates: start: 20170217

REACTIONS (16)
  - Vomiting [None]
  - Drug withdrawal convulsions [None]
  - Eye pain [None]
  - Neck pain [None]
  - Hypokalaemia [None]
  - Eye injury [None]
  - Hypertension [None]
  - Fall [None]
  - Condition aggravated [None]
  - Confusional state [None]
  - Headache [None]
  - Incorrect dose administered [None]
  - Hypophagia [None]
  - Hallucination [None]
  - Tachycardia [None]
  - Drug dose omission [None]

NARRATIVE: CASE EVENT DATE: 20170829
